FAERS Safety Report 4672803-X (Version None)
Quarter: 2005Q2

REPORT INFORMATION
  Report Type: 
  Country: None (occurrence: None)
  Receive Date: 20050523
  Receipt Date: 20050517
  Transmission Date: 20051028
  Serious: Yes (Hospitalization)
  Sender: FDA-Public Use
  Company Number: GBWYE672917MAY05

PATIENT
  Age: 77 Year
  Sex: Male

DRUGS (4)
  1. EFFEXOR [Suspect]
     Indication: DEPRESSION
     Dosage: 75MG, ORAL
     Route: 048
     Dates: start: 20041201, end: 20050401
  2. FERROUS SULFATE TAB [Concomitant]
  3. ASPIRIN [Concomitant]
  4. BISOPROLOL FUMARATE [Concomitant]

REACTIONS (2)
  - CHOLESTASIS [None]
  - LIVER FUNCTION TEST ABNORMAL [None]
